FAERS Safety Report 19472971 (Version 1)
Quarter: 2021Q2

REPORT INFORMATION
  Report Type: Spontaneous
  Country: NL (occurrence: NL)
  Receive Date: 20210629
  Receipt Date: 20210629
  Transmission Date: 20210717
  Serious: Yes (Other)
  Sender: FDA-Public Use
  Company Number: NL-MYLANLABS-2021M1038159

PATIENT
  Age: 65 Year
  Sex: Male
  Weight: 82 kg

DRUGS (5)
  1. ATORVASTATIN [Suspect]
     Active Substance: ATORVASTATIN
     Indication: HYPERCHOLESTEROLAEMIA
     Dosage: 1 DOSAGE FORM, QD (1 X DAAGS)
     Dates: start: 201502, end: 20200917
  2. ACETYLSALICYLZUUR [Concomitant]
     Active Substance: ASPIRIN
     Dosage: 80 MILLIGRAM (TABLET)
  3. RAMIPRIL. [Concomitant]
     Active Substance: RAMIPRIL
     Dosage: 5 MILLIGRAM (CAPSULE, 5 MG (MILLIGRAM))
  4. METOPROLOL                         /00376903/ [Concomitant]
     Active Substance: METOPROLOL SUCCINATE
     Dosage: 25 MILLIGRAM
  5. EZETIMIBE. [Concomitant]
     Active Substance: EZETIMIBE
     Dosage: 10 MILLIGRAM (TABLET, 10 MG (MILLIGRAM))

REACTIONS (5)
  - Balance disorder [Unknown]
  - Malaise [Recovered/Resolved]
  - Chills [Unknown]
  - Delirium [Recovered/Resolved]
  - Amnesia [Unknown]

NARRATIVE: CASE EVENT DATE: 20181018
